FAERS Safety Report 5533811-X (Version None)
Quarter: 2007Q4

REPORT INFORMATION
  Report Type: 
  Country: None (occurrence: None)
  Receive Date: 20071204
  Receipt Date: 20030306
  Transmission Date: 20080405
  Serious: Yes (Death, Life-Threatening)
  Sender: FDA-Public Use
  Company Number: JP-GENENTECH-200320

PATIENT
  Sex: Female
  Weight: 63 kg

DRUGS (3)
  1. HERCEPTIN [Suspect]
     Indication: BREAST CANCER METASTATIC
     Dosage: 240 MG, SINGLE
     Route: 042
     Dates: start: 20030212, end: 20030212
  2. HERCEPTIN [Suspect]
     Dosage: 120 MG, UNK
     Route: 042
     Dates: start: 20030219, end: 20030219
  3. TAXOTERE [Concomitant]
     Indication: BREAST CANCER METASTATIC
     Dates: start: 20030213, end: 20030213

REACTIONS (10)
  - CONDITION AGGRAVATED [None]
  - HEPATIC CIRRHOSIS [None]
  - HEPATIC FAILURE [None]
  - HEPATIC FIBROSIS [None]
  - HYPOXIA [None]
  - IMMUNODEFICIENCY [None]
  - MOUTH HAEMORRHAGE [None]
  - ORAL CANDIDIASIS [None]
  - ORAL INTAKE REDUCED [None]
  - STOMATITIS [None]
